FAERS Safety Report 7343562-7 (Version None)
Quarter: 2011Q1

REPORT INFORMATION
  Report Type: 
  Country: None (occurrence: None)
  Receive Date: 20110310
  Receipt Date: 20100515
  Transmission Date: 20110831
  Serious: No
  Sender: FDA-Public Use
  Company Number: A0860329A

PATIENT
  Sex: Female

DRUGS (1)
  1. NICORETTE (MINT) [Suspect]

REACTIONS (4)
  - PRODUCT QUALITY ISSUE [None]
  - THERMAL BURN [None]
  - NAUSEA [None]
  - DYSPEPSIA [None]
